FAERS Safety Report 23060876 (Version 1)
Quarter: 2023Q4

REPORT INFORMATION
  Report Type: Spontaneous
  Country: JP (occurrence: JP)
  Receive Date: 20231012
  Receipt Date: 20231012
  Transmission Date: 20240109
  Serious: Yes (Hospitalization, Other)
  Sender: FDA-Public Use
  Company Number: JP-MTPC-MTPC2023-0024814

PATIENT
  Age: 35 Year
  Sex: Female

DRUGS (2)
  1. EDARAVONE [Suspect]
     Active Substance: EDARAVONE
     Indication: Carotid artery occlusion
     Route: 065
  2. ASPIRIN [Concomitant]
     Active Substance: ASPIRIN
     Indication: Carotid artery occlusion
     Route: 065

REACTIONS (3)
  - Paralysis [Unknown]
  - Cerebral artery stenosis [Unknown]
  - Maternal exposure during pregnancy [Unknown]
